FAERS Safety Report 6775870-2 (Version None)
Quarter: 2010Q2

REPORT INFORMATION
  Report Type: 
  Country: None (occurrence: None)
  Receive Date: 20100617
  Receipt Date: 20100610
  Transmission Date: 20101027
  Serious: Yes (Death, Life-Threatening, Hospitalization)
  Sender: FDA-Public Use
  Company Number: GB-ELI_LILLY_AND_COMPANY-GB201006002742

PATIENT
  Age: 71 Year
  Sex: Female
  Weight: 71 kg

DRUGS (8)
  1. PEMETREXED [Suspect]
     Indication: NON-SMALL CELL LUNG CANCER RECURRENT
     Dosage: 900 MG, UNKNOWN
     Route: 042
     Dates: start: 20100401
  2. ERLOTINIB [Concomitant]
     Indication: NON-SMALL CELL LUNG CANCER RECURRENT
     Dosage: 150 MG, UNKNOWN
     Route: 048
     Dates: start: 20090319, end: 20100325
  3. FOLIC ACID [Concomitant]
     Dosage: UNK, UNKNOWN
  4. HYDROXOCOBALAMIN [Concomitant]
     Dosage: UNK, UNKNOWN
  5. DEXAMETHASONE [Concomitant]
     Dosage: UNK, UNKNOWN
  6. DOMPERIDONE [Concomitant]
     Dosage: UNK, UNKNOWN
  7. DOTHIEPIN HYDROCHLORIDE [Concomitant]
     Dosage: UNK, UNKNOWN
  8. EXEMESTANE [Concomitant]
     Dosage: UNK, UNKNOWN

REACTIONS (4)
  - CARDIAC FAILURE [None]
  - LOWER RESPIRATORY TRACT INFECTION [None]
  - PNEUMOTHORAX [None]
  - PULMONARY OEDEMA [None]
